FAERS Safety Report 14956305 (Version 1)
Quarter: 2018Q2

REPORT INFORMATION
  Report Type: Spontaneous
  Country: FR (occurrence: FR)
  Receive Date: 20180531
  Receipt Date: 20180531
  Transmission Date: 20180711
  Serious: Yes (Other)
  Sender: FDA-Public Use
  Company Number: FR-ROCHE-2132524

PATIENT
  Age: 3 Year
  Sex: Male
  Weight: 16.5 kg

DRUGS (3)
  1. SOLUPRED (FRANCE) [Concomitant]
     Active Substance: PREDNISOLONE
     Indication: BRAIN STEM GLIOMA
     Route: 048
     Dates: start: 201711
  2. AVASTIN [Suspect]
     Active Substance: BEVACIZUMAB
     Indication: BRAIN STEM GLIOMA
     Dosage: 25MG/ML?LAST DOSE ON 01/MAR/2018
     Route: 041
     Dates: start: 20180118
  3. TARCEVA [Concomitant]
     Active Substance: ERLOTINIB HYDROCHLORIDE
     Indication: BRAIN STEM GLIOMA
     Route: 048
     Dates: start: 20171121

REACTIONS (1)
  - Dermatitis bullous [Recovered/Resolved]

NARRATIVE: CASE EVENT DATE: 20180312
